FAERS Safety Report 24191990 (Version 3)
Quarter: 2025Q1

REPORT INFORMATION
  Report Type: Report from Study
  Country: US (occurrence: US)
  Receive Date: 20240809
  Receipt Date: 20250219
  Transmission Date: 20250408
  Serious: Yes (Death)
  Sender: ABBVIE
  Company Number: US-ABBVIE-5871439

PATIENT
  Sex: Male
  Weight: 73 kg

DRUGS (1)
  1. VRAYLAR [Suspect]
     Active Substance: CARIPRAZINE
     Indication: Product used for unknown indication
     Dosage: FORM STRENGTH: 1.5 MILLIGRAM
     Route: 048

REACTIONS (3)
  - Haematemesis [Fatal]
  - Cirrhosis alcoholic [Fatal]
  - Gastrointestinal haemorrhage [Fatal]
